FAERS Safety Report 6788114-2 (Version None)
Quarter: 2010Q2

REPORT INFORMATION
  Report Type: 
  Country: None (occurrence: None)
  Receive Date: 20100623
  Receipt Date: 20080206
  Transmission Date: 20101027
  Serious: No
  Sender: FDA-Public Use
  Company Number: US-PFIZER INC-2007101137

PATIENT
  Age: 41 Year
  Sex: Female
  Weight: 94.8 kg

DRUGS (3)
  1. CADUET [Suspect]
     Indication: HYPERTENSION
     Dosage: 10/20
  2. CADUET [Suspect]
     Indication: HYPERCHOLESTEROLAEMIA
  3. NORVASC [Concomitant]

REACTIONS (3)
  - JOINT SWELLING [None]
  - MYALGIA [None]
  - OEDEMA PERIPHERAL [None]
